FAERS Safety Report 8243914-7 (Version None)
Quarter: 2012Q1

REPORT INFORMATION
  Report Type: 
  Country: None (occurrence: None)
  Receive Date: 20120329
  Receipt Date: 20110720
  Transmission Date: 20120608
  Serious: No
  Sender: FDA-Public Use
  Company Number: US-MYLANLABS-2011S1012155

PATIENT
  Age: 56 Year
  Sex: Female
  Weight: 108.86 kg

DRUGS (4)
  1. VITAMIN E [Concomitant]
  2. SIMVASTATIN [Concomitant]
  3. NEXIUM [Concomitant]
  4. ESTRADIOL [Suspect]
     Indication: HORMONE REPLACEMENT THERAPY
     Dosage: CHANGED QW
     Route: 062
     Dates: start: 20101201, end: 20110601

REACTIONS (5)
  - APPLICATION SITE DISCHARGE [None]
  - APPLICATION SITE PRURITUS [None]
  - APPLICATION SITE VESICLES [None]
  - APPLICATION SITE SCAR [None]
  - APPLICATION SITE BURN [None]
